FAERS Safety Report 15878128 (Version 1)
Quarter: 2019Q1

REPORT INFORMATION
  Report Type: Spontaneous
  Country: US (occurrence: US)
  Receive Date: 20190128
  Receipt Date: 20190128
  Transmission Date: 20190417
  Serious: No
  Sender: FDA-Public Use
  Company Number: US-PFIZER INC-2019033754

PATIENT
  Age: 14 Year
  Sex: Male

DRUGS (1)
  1. GENOTROPIN MQ [Suspect]
     Active Substance: SOMATROPIN
     Indication: PRADER-WILLI SYNDROME
     Dosage: 0.4 MG, DAILY
     Dates: start: 20130529

REACTIONS (4)
  - Vitamin D decreased [Unknown]
  - Blood testosterone abnormal [Unknown]
  - Blood luteinising hormone decreased [Unknown]
  - Glycosylated haemoglobin increased [Unknown]
